FAERS Safety Report 4318302-6 (Version None)
Quarter: 2004Q1

REPORT INFORMATION
  Report Type: 
  Country: None (occurrence: None)
  Receive Date: 20040315
  Receipt Date: 20040304
  Transmission Date: 20041129
  Serious: Yes (Hospitalization)
  Sender: FDA-Public Use
  Company Number: US068741

PATIENT
  Age: 34 Year
  Sex: Male

DRUGS (2)
  1. EPOGEN [Suspect]
     Indication: DIALYSIS
     Dosage: 60000 U, 3 IN 1 WEEKS, IV
     Route: 042
     Dates: start: 20030701
  2. IRON [Concomitant]

REACTIONS (5)
  - ANAEMIA [None]
  - DRUG EFFECT DECREASED [None]
  - HAEMOCHROMATOSIS [None]
  - INFECTION [None]
  - LIVER DISORDER [None]
